FAERS Safety Report 14988399 (Version 1)
Quarter: 2018Q2

REPORT INFORMATION
  Report Type: Spontaneous
  Country: JP (occurrence: JP)
  Receive Date: 20180608
  Receipt Date: 20180608
  Transmission Date: 20180711
  Serious: Yes (Death, Hospitalization)
  Sender: FDA-Public Use
  Company Number: JP-PFIZER INC-2018231928

PATIENT
  Age: 95 Year
  Sex: Female

DRUGS (3)
  1. ELNEOPA NO.2 [Concomitant]
     Active Substance: AMINO ACIDS\CARBOHYDRATES\ELECTROLYTES NOS\VITAMINS
     Dosage: 1000 ML, DAILY
     Dates: start: 20180502, end: 20180514
  2. ZYVOX [Suspect]
     Active Substance: LINEZOLID
     Indication: PNEUMONIA
     Dosage: 600 MG, 2X/DAY
     Route: 048
     Dates: start: 20180502, end: 20180508
  3. ZYVOX [Suspect]
     Active Substance: LINEZOLID
     Dosage: 600 MG, 1X/DAY
     Route: 048
     Dates: start: 20180509, end: 20180514

REACTIONS (4)
  - Anaemia [Not Recovered/Not Resolved]
  - Pneumonia [Fatal]
  - Platelet count decreased [Not Recovered/Not Resolved]
  - Drug ineffective [Fatal]

NARRATIVE: CASE EVENT DATE: 20180510
